FAERS Safety Report 14366556 (Version 1)
Quarter: 2018Q1

REPORT INFORMATION
  Report Type: Spontaneous
  Country: US (occurrence: US)
  Receive Date: 20180108
  Receipt Date: 20180108
  Transmission Date: 20180509
  Serious: Yes (Other)
  Sender: FDA-Public Use
  Company Number: None

PATIENT
  Age: 57 Year
  Sex: Male
  Weight: 108.9 kg

DRUGS (1)
  1. DAPTOMYCIN 500MG POWDER VIAL HOSPIRA [Suspect]
     Active Substance: DAPTOMYCIN
     Indication: DEVICE RELATED INFECTION
     Dosage: ROUTE - IV PUSH?FREQUENCY - Q24 HOURS
     Route: 042
     Dates: start: 20180103, end: 20180104

REACTIONS (2)
  - Dyspnoea [None]
  - Chills [None]

NARRATIVE: CASE EVENT DATE: 20170103
